FAERS Safety Report 8577564 (Version 2)
Quarter: 2012Q4

REPORT INFORMATION
  Report Type: 
  Country: US (occurrence: US)
  Receive Date: 20120524
  Receipt Date: 20121119
  Transmission Date: 20130627
  Serious: Yes (Hospitalization)
  Sender: FDA-Public Use
  Company Number: US-BAYER-2012-050414

PATIENT
  Age: 28 Year
  Sex: Female
  Weight: 83.9 kg

DRUGS (7)
  1. YAZ [Suspect]
     Indication: PREMENSTRUAL DYSPHORIC DISORDER
     Dosage: UNK
     Dates: start: 200806, end: 200811
  2. YASMIN [Suspect]
     Indication: PREMENSTRUAL DYSPHORIC DISORDER
     Dosage: UNK
     Dates: start: 200408, end: 200409
  3. AZITHROMYCIN [Concomitant]
  4. BROMATANE DX [Concomitant]
  5. PROMETHAZINE [Concomitant]
  6. RANITIDINE [Concomitant]
  7. DICYCLOMINE [Concomitant]

REACTIONS (7)
  - Cholelithiasis [None]
  - Cholecystitis chronic [None]
  - Injury [None]
  - Abdominal pain [None]
  - Deformity [None]
  - Anxiety [None]
  - Anhedonia [None]
